FAERS Safety Report 24032541 (Version 1)
Quarter: 2024Q3

REPORT INFORMATION
  Report Type: Spontaneous
  Country: US (occurrence: US)
  Receive Date: 20240701
  Receipt Date: 20240701
  Transmission Date: 20241017
  Serious: No
  Sender: AMGEN
  Company Number: US-AMGEN-USASP2024127449

PATIENT
  Age: 79 Year
  Sex: Female

DRUGS (2)
  1. PROLIA [Suspect]
     Active Substance: DENOSUMAB
     Indication: Bone disorder
     Dosage: 60 MILLIGRAM, Q6MO
     Route: 065
     Dates: start: 20240524
  2. COREG [Concomitant]
     Active Substance: CARVEDILOL

REACTIONS (2)
  - Cystitis [Unknown]
  - Asthenia [Unknown]

NARRATIVE: CASE EVENT DATE: 20240524
